FAERS Safety Report 25052599 (Version 1)
Quarter: 2025Q1

REPORT INFORMATION
  Report Type: Spontaneous
  Country: US (occurrence: US)
  Receive Date: 20250307
  Receipt Date: 20250307
  Transmission Date: 20250408
  Serious: No
  Sender: HILL DERMACEUTICALS, INC.
  Company Number: US-Hill Dermaceuticals, Inc.-2172508

PATIENT
  Sex: Female

DRUGS (10)
  1. DERMA-SMOOTHE/FS [Suspect]
     Active Substance: FLUOCINOLONE ACETONIDE
     Indication: Psoriasis
  2. HYDROCORTISONE [Suspect]
     Active Substance: HYDROCORTISONE
  3. MOMETASONE FUROATE [Suspect]
     Active Substance: MOMETASONE FUROATE
  4. TRIAMCINOLONE ACETONIDE [Suspect]
     Active Substance: TRIAMCINOLONE ACETONIDE
  5. FLUOCINONIDE [Suspect]
     Active Substance: FLUOCINONIDE
  6. CLOBETASOL PROPIONATE [Suspect]
     Active Substance: CLOBETASOL PROPIONATE
  7. DESOXIMETASONE [Suspect]
     Active Substance: DESOXIMETASONE
  8. SELENIUM SULFIDE [Suspect]
     Active Substance: SELENIUM SULFIDE
  9. OTEZLA [Suspect]
     Active Substance: APREMILAST
  10. HUMIRA [Suspect]
     Active Substance: ADALIMUMAB

REACTIONS (1)
  - Drug ineffective [Unknown]
